FAERS Safety Report 10469330 (Version 2)
Quarter: 2015Q1

REPORT INFORMATION
  Report Type: Report from Study
  Country: TR (occurrence: TR)
  Receive Date: 20140923
  Receipt Date: 20150304
  Transmission Date: 20150720
  Serious: Yes (Hospitalization)
  Sender: FDA-Public Use
  Company Number: PHHY2014TR118429

PATIENT
  Age: 21 Year
  Sex: Male
  Weight: 45 kg

DRUGS (2)
  1. EXJADE [Suspect]
     Active Substance: DEFERASIROX
     Indication: THALASSAEMIA BETA
     Dosage: 1500 MG, QD
     Route: 048
     Dates: start: 2010
  2. EXJADE [Suspect]
     Active Substance: DEFERASIROX
     Dosage: 1500 MG, QD
     Route: 048

REACTIONS (3)
  - Intestinal perforation [Recovering/Resolving]
  - Liver disorder [Not Recovered/Not Resolved]
  - Gastric perforation [Recovering/Resolving]

NARRATIVE: CASE EVENT DATE: 20140901
